FAERS Safety Report 12111294 (Version 2)
Quarter: 2016Q1

REPORT INFORMATION
  Report Type: Spontaneous
  Country: FR (occurrence: FR)
  Receive Date: 20160224
  Receipt Date: 20160303
  Transmission Date: 20160526
  Serious: Yes (Life-Threatening, Hospitalization)
  Sender: FDA-Public Use
  Company Number: FR-ASTRAZENECA-2016SE17385

PATIENT
  Age: 31813 Day
  Sex: Female

DRUGS (8)
  1. IRESSA [Suspect]
     Active Substance: GEFITINIB
     Indication: LUNG ADENOCARCINOMA
     Route: 048
     Dates: start: 20150210, end: 20150227
  2. LYSANXIA [Concomitant]
     Active Substance: PRAZEPAM
  3. FLECAINE [Concomitant]
     Active Substance: FLECAINIDE
  4. COAPROVEL [Concomitant]
     Active Substance: HYDROCHLOROTHIAZIDE\IRBESARTAN
  5. LERCAN [Concomitant]
     Active Substance: LERCANIDIPINE
  6. KARDEGIC [Concomitant]
     Active Substance: ASPIRIN LYSINE
  7. SERETIDE [Concomitant]
     Active Substance: FLUTICASONE FUROATE\SALMETEROL XINAFOATE
  8. PARIET [Concomitant]
     Active Substance: RABEPRAZOLE SODIUM

REACTIONS (2)
  - Thyroid disorder [Unknown]
  - Interstitial lung disease [Recovered/Resolved]

NARRATIVE: CASE EVENT DATE: 20150227
